FAERS Safety Report 24608575 (Version 2)
Quarter: 2024Q4

REPORT INFORMATION
  Report Type: Spontaneous
  Country: US (occurrence: US)
  Receive Date: 20241112
  Receipt Date: 20241203
  Transmission Date: 20250115
  Serious: No
  Sender: ALKERMES
  Company Number: US-ALKERMES INC.-ALK-2024-002767

PATIENT
  Sex: Male

DRUGS (4)
  1. VIVITROL [Suspect]
     Active Substance: NALTREXONE
     Indication: Drug abuse
     Dosage: 380 MILLIGRAM, QMO
     Route: 030
     Dates: start: 20240726
  2. CELEBREX [Concomitant]
     Active Substance: CELECOXIB
     Indication: Back pain
     Dosage: 200 MILLIGRAM, QD
     Route: 048
     Dates: start: 20241002
  3. CLINDAMYCIN [Concomitant]
     Active Substance: CLINDAMYCIN
     Indication: Hidradenitis
     Dosage: UNK, BID
     Route: 061
     Dates: start: 20240701
  4. METHOCARBAMOL [Concomitant]
     Active Substance: METHOCARBAMOL
     Indication: Back pain
     Dosage: 750 MILLIGRAM, TID, PRN
     Route: 048
     Dates: start: 20241104

REACTIONS (4)
  - Acne [Unknown]
  - Injection site pruritus [Unknown]
  - Arthralgia [Unknown]
  - Joint stiffness [Unknown]

NARRATIVE: CASE EVENT DATE: 20240101
